FAERS Safety Report 8201384-9 (Version None)
Quarter: 2012Q1

REPORT INFORMATION
  Report Type: 
  Country: None (occurrence: None)
  Receive Date: 20120312
  Receipt Date: 20120302
  Transmission Date: 20120608
  Serious: Yes (Hospitalization, Other)
  Sender: FDA-Public Use
  Company Number: US-BAYER-2012-021700

PATIENT
  Age: 58 Year
  Sex: Female

DRUGS (7)
  1. DIAZEPAM [Concomitant]
  2. MAGNESIUM [Suspect]
     Indication: VENTRICULAR ARRHYTHMIA
  3. ACETAMINOPHEN [Suspect]
  4. FLUOXETINE [Concomitant]
  5. LANSOPRAZOLE [Concomitant]
  6. CONJUGATED ESTROGEN [Concomitant]
  7. SUMATRIPTAN [Concomitant]

REACTIONS (3)
  - PYROGLUTAMATE INCREASED [None]
  - METABOLIC ACIDOSIS [None]
  - VENTRICULAR ARRHYTHMIA [None]
